FAERS Safety Report 25824696 (Version 2)
Quarter: 2025Q4

REPORT INFORMATION
  Report Type: Other
  Country: US (occurrence: US)
  Receive Date: 20250919
  Receipt Date: 20251013
  Transmission Date: 20260117
  Serious: No
  Sender: TRAVERE THERAPEUTICS
  Company Number: US-TRAVERE-2025TVT01117

PATIENT
  Age: 60 Year
  Sex: Female

DRUGS (3)
  1. FILSPARI [Suspect]
     Active Substance: SPARSENTAN
     Indication: Chronic kidney disease
     Route: 048
     Dates: start: 202410
  2. FILSPARI [Suspect]
     Active Substance: SPARSENTAN
     Indication: Nephritic syndrome
  3. FILSPARI [Suspect]
     Active Substance: SPARSENTAN
     Indication: Glomerulonephritis

REACTIONS (4)
  - Product use in unapproved indication [Unknown]
  - Cough [Unknown]
  - Rash [Recovered/Resolved]
  - Illness [Unknown]

NARRATIVE: CASE EVENT DATE: 20241001
